FAERS Safety Report 22939841 (Version 4)
Quarter: 2024Q1

REPORT INFORMATION
  Report Type: Report from Study
  Country: US (occurrence: US)
  Receive Date: 20230913
  Receipt Date: 20240221
  Transmission Date: 20240409
  Serious: Yes (Hospitalization, Other)
  Sender: FDA-Public Use
  Company Number: US-TAKEDA-2023TUS088614

PATIENT
  Sex: Female

DRUGS (1)
  1. VEDOLIZUMAB [Suspect]
     Active Substance: VEDOLIZUMAB
     Indication: Colitis ulcerative
     Dosage: 300 MILLIGRAM
     Route: 042

REACTIONS (7)
  - Abscess intestinal [Recovering/Resolving]
  - Colitis [Recovering/Resolving]
  - Malaise [Unknown]
  - Migraine [Unknown]
  - Infection [Recovering/Resolving]
  - Product dose omission issue [Unknown]
  - Nasopharyngitis [Unknown]
